FAERS Safety Report 23077680 (Version 1)
Quarter: 2023Q4

REPORT INFORMATION
  Report Type: Spontaneous
  Country: US (occurrence: US)
  Receive Date: 20231018
  Receipt Date: 20231018
  Transmission Date: 20240110
  Serious: No
  Sender: FDA-Public Use
  Company Number: US-SA-SAC20230704000976

PATIENT
  Age: 14 Year
  Sex: Female

DRUGS (1)
  1. FABRAZYME [Suspect]
     Active Substance: AGALSIDASE BETA
     Dosage: UNK
     Route: 065

REACTIONS (1)
  - Globotriaosylsphingosine increased [Unknown]

NARRATIVE: CASE EVENT DATE: 20221116
